FAERS Safety Report 18498740 (Version 1)
Quarter: 2020Q4

REPORT INFORMATION
  Report Type: Report from Study
  Country: US (occurrence: US)
  Receive Date: 20201113
  Receipt Date: 20201113
  Transmission Date: 20210114
  Serious: Yes (Hospitalization)
  Sender: FDA-Public Use
  Company Number: US-BIOGEN-2013BI022858

PATIENT
  Age: 37 Year
  Sex: Female

DRUGS (1)
  1. TYSABRI [Suspect]
     Active Substance: NATALIZUMAB
     Indication: MULTIPLE SCLEROSIS
     Route: 042
     Dates: start: 20120509

REACTIONS (8)
  - Pyelonephritis [Recovered/Resolved]
  - Bradykinesia [Unknown]
  - Urinary tract infection [Unknown]
  - Pneumonia [Unknown]
  - Asthenia [Not Recovered/Not Resolved]
  - Neurogenic bladder [Unknown]
  - Product dose omission issue [Recovered/Resolved]
  - Fatigue [Unknown]

NARRATIVE: CASE EVENT DATE: 2012
